FAERS Safety Report 5311305-4 (Version None)
Quarter: 2007Q2

REPORT INFORMATION
  Report Type: 
  Country: None (occurrence: None)
  Receive Date: 20070430
  Receipt Date: 20070419
  Transmission Date: 20071010
  Serious: Yes (Hospitalization)
  Sender: FDA-Public Use
  Company Number: PHEH2007US05999

PATIENT
  Age: 54 Year
  Sex: Female

DRUGS (1)
  1. ZELNORM [Suspect]
     Indication: BOWEL MOVEMENT IRREGULARITY
     Dosage: 6 MG, BID
     Route: 048
     Dates: start: 20060101, end: 20070330

REACTIONS (4)
  - DYSPNOEA [None]
  - HEART RATE DECREASED [None]
  - HEART RATE INCREASED [None]
  - HOT FLUSH [None]
